FAERS Safety Report 11779726 (Version 1)
Quarter: 2015Q4

REPORT INFORMATION
  Report Type: Report from Study
  Country: US (occurrence: US)
  Receive Date: 20151125
  Receipt Date: 20151125
  Transmission Date: 20160304
  Serious: Yes (Death)
  Sender: FDA-Public Use
  Company Number: US-BIOGENIDEC-2015BI154860

PATIENT
  Age: 72 Year
  Sex: Female

DRUGS (12)
  1. PLAVIX [Concomitant]
     Active Substance: CLOPIDOGREL BISULFATE
  2. TRAZODONE HYDROCHLORIDE. [Concomitant]
     Active Substance: TRAZODONE HYDROCHLORIDE
  3. TECFIDERA [Suspect]
     Active Substance: DIMETHYL FUMARATE
     Indication: MULTIPLE SCLEROSIS
     Route: 048
  4. DITROPAN XL [Concomitant]
     Active Substance: OXYBUTYNIN CHLORIDE
  5. OXYBUTYNIN CHLORIDE ER [Concomitant]
     Active Substance: OXYBUTYNIN CHLORIDE
  6. NIFEDIPINE. [Concomitant]
     Active Substance: NIFEDIPINE
  7. HYDROCODONE BITARTRATE AND ACETAMINOPHEN [Concomitant]
     Active Substance: ACETAMINOPHEN\HYDROCODONE BITARTRATE
  8. SERTRALINE HCL [Concomitant]
     Active Substance: SERTRALINE HYDROCHLORIDE
  9. ZOLPIDEM TARTRATE. [Concomitant]
     Active Substance: ZOLPIDEM TARTRATE
  10. LISINOPRIL. [Concomitant]
     Active Substance: LISINOPRIL
  11. OMEPRAZOLE. [Concomitant]
     Active Substance: OMEPRAZOLE
  12. PRAVASTATIN SODIUM. [Concomitant]
     Active Substance: PRAVASTATIN SODIUM

REACTIONS (1)
  - Death [Fatal]

NARRATIVE: CASE EVENT DATE: 20151116
